FAERS Safety Report 5293968-5 (Version None)
Quarter: 2007Q2

REPORT INFORMATION
  Report Type: 
  Country: None (occurrence: None)
  Receive Date: 20070405
  Receipt Date: 20070326
  Transmission Date: 20071010
  Serious: Yes (Other)
  Sender: FDA-Public Use
  Company Number: 13736848

PATIENT

DRUGS (1)
  1. EMSAM [Suspect]
     Dosage: 9 MILLIGRAM, 1/24 HOUR

REACTIONS (1)
  - HYPERTENSIVE CRISIS [None]
